FAERS Safety Report 9794714 (Version 2)
Quarter: 2014Q1

REPORT INFORMATION
  Report Type: Spontaneous
  Country: US (occurrence: US)
  Receive Date: 20140102
  Receipt Date: 20140117
  Transmission Date: 20141002
  Serious: Yes (Hospitalization, Other)
  Sender: FDA-Public Use
  Company Number: US-RB-062057-13

PATIENT
  Age: 47 Year
  Sex: Male

DRUGS (5)
  1. SUBOXONE FILM [Suspect]
     Indication: DRUG DEPENDENCE
     Dosage: SUBOXONE FILM
     Route: 060
     Dates: start: 2011, end: 201312
  2. SUBOXONE FILM [Suspect]
     Dosage: SUBOXONE FILM; CUTTING
     Route: 060
     Dates: start: 201312, end: 201312
  3. SUBOXONE FILM [Suspect]
     Dosage: SUBOXONE FILM
     Route: 060
     Dates: start: 201312, end: 201312
  4. SUBOXONE FILM [Suspect]
     Dosage: SUBOXONE FILM; CUTTING
     Route: 060
     Dates: start: 201312, end: 201312
  5. SUBOXONE FILM [Suspect]
     Dosage: SUBOXONE FILM
     Route: 060
     Dates: start: 201312, end: 20131220

REACTIONS (6)
  - Abdominal pain lower [Recovered/Resolved]
  - Gait disturbance [Recovered/Resolved]
  - Intentional underdose [Recovered/Resolved]
  - Wrong technique in drug usage process [Recovered/Resolved]
  - Appendicitis [Recovered/Resolved]
  - Mood altered [Recovered/Resolved]
